FAERS Safety Report 5894611-4 (Version None)
Quarter: 2008Q3

REPORT INFORMATION
  Report Type: 
  Country: None (occurrence: None)
  Receive Date: 20080922
  Receipt Date: 20080922
  Transmission Date: 20090109
  Serious: Yes (Hospitalization, Other)
  Sender: FDA-Public Use
  Company Number: APP200800793

PATIENT

DRUGS (2)
  1. OXYTOCIN [Suspect]
     Indication: DRUG USE FOR UNKNOWN INDICATION
     Dosage: ONCE, INTRAVENOUS
     Route: 042
  2. LACTATED RINGERS (FLEBOBAG RING ACT) [Concomitant]

REACTIONS (6)
  - APGAR SCORE LOW [None]
  - BRADYCARDIA FOETAL [None]
  - MATERNAL DRUGS AFFECTING FOETUS [None]
  - MEDICATION ERROR [None]
  - NEONATAL RESPIRATORY DISTRESS SYNDROME [None]
  - VACUUM EXTRACTOR DELIVERY [None]
